FAERS Safety Report 8102584 (Version 5)
Quarter: 2013Q3

REPORT INFORMATION
  Report Type: Spontaneous
  Country: US (occurrence: US)
  Receive Date: 20110823
  Receipt Date: 20130828
  Transmission Date: 20140515
  Serious: Yes (Hospitalization)
  Sender: FDA-Public Use
  Company Number: US-GLAXOSMITHKLINE-A0915691A

PATIENT
  Age: 68 Year
  Sex: Female
  Weight: 78.2 kg

DRUGS (1)
  1. AVANDIA [Suspect]
     Indication: DIABETES MELLITUS
     Route: 048
     Dates: start: 20020801, end: 20080213

REACTIONS (8)
  - Cardiac failure congestive [Not Recovered/Not Resolved]
  - Macular oedema [Unknown]
  - Stent placement [Unknown]
  - Coronary artery bypass [Unknown]
  - Electrocardiogram abnormal [Unknown]
  - Carotid artery stenosis [Unknown]
  - Left atrial dilatation [Unknown]
  - Cerebrovascular accident [Unknown]
